FAERS Safety Report 15075065 (Version 2)
Quarter: 2023Q4

REPORT INFORMATION
  Report Type: Spontaneous
  Country: US (occurrence: US)
  Receive Date: 20180627
  Receipt Date: 20231109
  Transmission Date: 20240110
  Serious: No
  Sender: FDA-Public Use
  Company Number: US-SAOL THERAPEUTICS-2017SAO01743

PATIENT
  Sex: Female
  Weight: 49.433 kg

DRUGS (2)
  1. LIORESAL [Suspect]
     Active Substance: BACLOFEN
     Indication: Muscle spasticity
     Dosage: 422.3 ?G, \DAY
     Route: 037
     Dates: start: 20161105
  2. LIORESAL [Suspect]
     Active Substance: BACLOFEN
     Indication: Cerebral palsy

REACTIONS (1)
  - Upper respiratory tract infection bacterial [Not Recovered/Not Resolved]
